FAERS Safety Report 6710762-6 (Version None)
Quarter: 2010Q2

REPORT INFORMATION
  Report Type: 
  Country: None (occurrence: None)
  Receive Date: 20100504
  Receipt Date: 20100504
  Transmission Date: 20101027
  Serious: No
  Sender: FDA-Public Use
  Company Number: None

PATIENT
  Age: 26 Year
  Sex: Female
  Weight: 56.6996 kg

DRUGS (1)
  1. OIL-FREE ACNE WASH NEUTROGENA [Suspect]
     Indication: ACNE
     Dosage: APPLIED TO FACE TID TOP
     Route: 061
     Dates: start: 20100430, end: 20100501

REACTIONS (3)
  - APPLICATION SITE DRYNESS [None]
  - APPLICATION SITE ERYTHEMA [None]
  - EYELID OEDEMA [None]
